FAERS Safety Report 16971567 (Version 6)
Quarter: 2020Q1

REPORT INFORMATION
  Report Type: Report from Study
  Country: JP (occurrence: JP)
  Receive Date: 20191029
  Receipt Date: 20200211
  Transmission Date: 20200409
  Serious: Yes (Death, Hospitalization)
  Sender: FDA-Public Use
  Company Number: JP-KYOWAKIRIN-2019AKK017047

PATIENT

DRUGS (16)
  1. GABALON [Concomitant]
     Active Substance: BACLOFEN
     Indication: MUSCLE SPASMS
     Dosage: 10 MG, TID
     Route: 048
     Dates: end: 20191104
  2. NIFLEC [Suspect]
     Active Substance: POLYETHYLENE GLYCOLS\POTASSIUM CHLORIDE\SODIUM BICARBONATE\SODIUM CHLORIDE\SODIUM SULFATE ANHYDROUS
     Indication: BOWEL PREPARATION
     Dosage: UNK
     Route: 048
  3. PREDONINE [Concomitant]
     Active Substance: PREDNISOLONE
     Indication: TROPICAL SPASTIC PARESIS
     Dosage: 5 MG, QOD
     Route: 048
     Dates: start: 20140627, end: 20191025
  4. AVOLVE [Concomitant]
     Active Substance: DUTASTERIDE
     Indication: BENIGN PROSTATIC HYPERPLASIA
     Dosage: 0.5 MG, QD
     Route: 048
     Dates: end: 20191030
  5. TAKECAB [Concomitant]
     Active Substance: VONOPRAZAN FUMURATE
     Indication: GASTROINTESTINAL DISORDER
     Dosage: 20 MG, QD
     Route: 048
     Dates: start: 20191015, end: 20191206
  6. CYMBALTA [Concomitant]
     Active Substance: DULOXETINE HYDROCHLORIDE
     Indication: PAIN
     Dosage: 20 MG, QD
     Route: 048
     Dates: end: 20191206
  7. CINAL (ASCORBIC ACID\CALCIUM PANTOTHENATE) [Concomitant]
     Active Substance: ASCORBIC ACID\CALCIUM PANTOTHENATE
     Indication: TROPICAL SPASTIC PARESIS
     Dosage: 200 MG, TID
     Route: 048
     Dates: end: 20191206
  8. LUNESTA [Concomitant]
     Active Substance: ESZOPICLONE
     Indication: INSOMNIA
     Dosage: 2 MG, QD
     Route: 048
     Dates: start: 20191015, end: 20191206
  9. MOGAMULIZUMAB [Suspect]
     Active Substance: MOGAMULIZUMAB
     Indication: TROPICAL SPASTIC PARESIS
     Dosage: 0.3 MG/KG, 1X/3MONTHS
     Route: 041
     Dates: start: 20180614, end: 20190808
  10. METHADERM [Concomitant]
     Active Substance: DEXAMETHASONE DIPROPIONATE
     Indication: RASH
     Dosage: ADEQUATE DOSE, PRN
     Route: 061
     Dates: start: 20180719
  11. LULICON [Concomitant]
     Active Substance: LULICONAZOLE
     Indication: TINEA PEDIS
     Dosage: ADEQUATE DOSE, PRN
     Route: 061
     Dates: start: 20180823
  12. LIMAPROST ALFADEX [Concomitant]
     Active Substance: LIMAPROST
     Indication: FEELING COLD
     Dosage: 5 UG, TID
     Route: 048
     Dates: end: 20191108
  13. NAFTOPIDIL OD [Concomitant]
     Active Substance: NAFTOPIDIL
     Indication: BENIGN PROSTATIC HYPERPLASIA
     Dosage: 75 MG, QD
     Route: 048
     Dates: end: 20191030
  14. HIRUDOID [Concomitant]
     Active Substance: GLYCOSAMINOGLYCANS
     Indication: RASH
     Dosage: ADEQUATE DOSE, PRN
     Route: 061
     Dates: start: 20180719
  15. ALMETA [Concomitant]
     Active Substance: ALCLOMETASONE DIPROPIONATE
     Indication: SEBORRHOEIC KERATOSIS
     Dosage: ADEQUATE DOSE, PRN
     Route: 061
     Dates: start: 20190221, end: 20191025
  16. BOFUTSUSHOSANRYO [ANGELICA ACUTILOBA ROOT;ATRACTYLODES SPP. RHIZOME;CA [Concomitant]
     Indication: CONSTIPATION
     Dosage: 2.5 G, TID
     Route: 048

REACTIONS (2)
  - Glomerulonephritis rapidly progressive [Not Recovered/Not Resolved]
  - Pneumonia aspiration [Fatal]

NARRATIVE: CASE EVENT DATE: 20191025
